FAERS Safety Report 10661113 (Version 1)
Quarter: 2014Q4

REPORT INFORMATION
  Report Type: Spontaneous
  Country: US (occurrence: None)
  Receive Date: 20141216
  Receipt Date: 20141216
  Transmission Date: 20150529
  Serious: No
  Sender: FDA-Public Use
  Company Number: None

PATIENT
  Age: 62 Year
  Sex: Female
  Weight: 78.02 kg

DRUGS (1)
  1. SYMBICORT [Suspect]
     Active Substance: BUDESONIDE\FORMOTEROL FUMARATE DIHYDRATE
     Indication: PNEUMONIA
     Dosage: 160 MCG BUDESONIDE/4.5 MCG; 2 PUFFS; INHALANT
     Route: 055
     Dates: start: 20141203, end: 20141205

REACTIONS (3)
  - Cough [None]
  - Respiratory disorder [None]
  - Retching [None]

NARRATIVE: CASE EVENT DATE: 20141204
